FAERS Safety Report 7289480-4 (Version None)
Quarter: 2011Q1

REPORT INFORMATION
  Report Type: 
  Country: None (occurrence: None)
  Receive Date: 20110211
  Receipt Date: 20110204
  Transmission Date: 20110831
  Serious: Yes (Other)
  Sender: FDA-Public Use
  Company Number: TR-GILEAD-2011-0035995

PATIENT
  Age: 59 Year
  Sex: Female

DRUGS (2)
  1. VIREAD [Suspect]
     Indication: HEPATITIS B
     Route: 048
     Dates: start: 20100801
  2. BELOC [Concomitant]
     Indication: HYPERTENSION

REACTIONS (1)
  - BLOOD POTASSIUM INCREASED [None]
